FAERS Safety Report 5357623-5 (Version None)
Quarter: 2007Q2

REPORT INFORMATION
  Report Type: 
  Country: None (occurrence: None)
  Receive Date: 20070614
  Receipt Date: 20070531
  Transmission Date: 20071010
  Serious: Yes (Other)
  Sender: FDA-Public Use
  Company Number: US-SHR-US-2005-010662

PATIENT
  Age: 51 Year
  Sex: Female
  Weight: 87.075 kg

DRUGS (16)
  1. BETASERON [Suspect]
     Indication: RELAPSING-REMITTING MULTIPLE SCLEROSIS
     Dates: start: 20010409, end: 20050815
  2. BETASERON [Suspect]
     Dates: start: 20050921, end: 20060712
  3. BETASERON [Suspect]
     Dosage: 8 MIU, EVERY 2D
     Route: 058
     Dates: start: 20060721
  4. BETASERON [Suspect]
     Dosage: 8 MIU, EVERY 2D
     Route: 058
     Dates: start: 20010409, end: 20050713
  5. BACLOFEN [Concomitant]
     Dosage: UNK, 3X/DAY
  6. WELLBUTRIN [Concomitant]
     Dosage: 150 UNK, 2X/DAY
  7. ATIVAN [Concomitant]
  8. GLEEVEC [Concomitant]
  9. GLEEVEC [Concomitant]
     Dosage: 400 MG, 1X/DAY
     Route: 048
     Dates: start: 20050601
  10. PROTONIX [Concomitant]
  11. PROVIGIL [Concomitant]
  12. IBUPROFEN [Concomitant]
  13. ANALGESICS [Concomitant]
  14. COPAXONE [Suspect]
     Dates: start: 20050815, end: 20050921
  15. GLEEVEC [Suspect]
     Dosage: 400 MG, 1X/DAY
     Route: 048
     Dates: start: 20050601
  16. PREGABALIN [Concomitant]

REACTIONS (16)
  - BASOPHIL COUNT INCREASED [None]
  - BLAST CELL COUNT INCREASED [None]
  - CHRONIC MYELOID LEUKAEMIA [None]
  - EOSINOPHIL COUNT INCREASED [None]
  - HAEMATOCRIT DECREASED [None]
  - HYPERSENSITIVITY [None]
  - INJECTION SITE PAIN [None]
  - MONOCYTE COUNT INCREASED [None]
  - MULTIPLE SCLEROSIS [None]
  - MYELOCYTE COUNT INCREASED [None]
  - NEUTROPHIL COUNT INCREASED [None]
  - PAIN IN EXTREMITY [None]
  - PROMYELOCYTE COUNT INCREASED [None]
  - RED BLOOD CELL COUNT DECREASED [None]
  - RED BLOOD CELL COUNT INCREASED [None]
  - RED CELL DISTRIBUTION WIDTH INCREASED [None]
